FAERS Safety Report 17905161 (Version 1)
Quarter: 2020Q2

REPORT INFORMATION
  Report Type: Spontaneous
  Country: US (occurrence: US)
  Receive Date: 20200616
  Receipt Date: 20200616
  Transmission Date: 20200714
  Serious: No
  Sender: FDA-Public Use
  Company Number: US-ROCHE-2411798

PATIENT
  Age: 12 Year
  Sex: Female

DRUGS (1)
  1. ACTEMRA [Suspect]
     Active Substance: TOCILIZUMAB
     Indication: JUVENILE IDIOPATHIC ARTHRITIS
     Dosage: STRENGTH: 200 MG/10ML
     Route: 042
     Dates: start: 20190608

REACTIONS (2)
  - Tongue discomfort [Unknown]
  - Cough [Unknown]

NARRATIVE: CASE EVENT DATE: 20190907
